FAERS Safety Report 24328063 (Version 1)
Quarter: 2024Q3

REPORT INFORMATION
  Report Type: Spontaneous
  Country: CN (occurrence: CN)
  Receive Date: 20240917
  Receipt Date: 20240917
  Transmission Date: 20241017
  Serious: Yes (Life-Threatening, Hospitalization)
  Sender: SANDOZ
  Company Number: CN-MLMSERVICE-20240903-PI182490-00336-1

PATIENT
  Age: 58 Year
  Sex: Female

DRUGS (4)
  1. ZOLEDRONIC ACID [Suspect]
     Active Substance: ZOLEDRONIC ACID
     Indication: Osteoporosis
     Dosage: INTRAVENOUS INFUSION OF ZOLEDRONIC ACID INJECTION 5MG
     Route: 042
     Dates: start: 20230823
  2. PREDNISONE ACETATE [Concomitant]
     Active Substance: PREDNISONE ACETATE
     Indication: Behcet^s syndrome
     Dosage: 40 MG ORAL QD
     Route: 048
     Dates: start: 202302
  3. PREDNISONE ACETATE [Concomitant]
     Active Substance: PREDNISONE ACETATE
     Dosage: DOSE REDUCTION 10MG EVERY 3 DAYS UNTIL DRUG WITHDRAWAL
     Route: 048
  4. THALIDOMIDE [Concomitant]
     Active Substance: THALIDOMIDE
     Indication: Behcet^s syndrome
     Dosage: 25MG ORAL 3 TIMES A DAY
     Route: 048
     Dates: start: 202302

REACTIONS (7)
  - Gastrointestinal infection [Recovering/Resolving]
  - Chronic gastritis [Recovering/Resolving]
  - Sepsis [Recovering/Resolving]
  - Septic shock [Recovering/Resolving]
  - Syncope [Recovered/Resolved]
  - Acute kidney injury [Recovering/Resolving]
  - Oesophagitis [Recovering/Resolving]

NARRATIVE: CASE EVENT DATE: 20230824
